FAERS Safety Report 18944432 (Version 1)
Quarter: 2021Q1

REPORT INFORMATION
  Report Type: Spontaneous
  Country: US (occurrence: US)
  Receive Date: 20210226
  Receipt Date: 20210226
  Transmission Date: 20210420
  Serious: Yes (Hospitalization)
  Sender: FDA-Public Use
  Company Number: None

PATIENT
  Sex: Male

DRUGS (3)
  1. MONTELUKAST, METOPROLOL SUCCINATE, POTASSIUM CHLORIDE, GABAPENTIN [Concomitant]
  2. TORSEMIDE, COLCHICINE, SPIRONOLACTONE, SIMVASTATIN [Concomitant]
  3. VYNDAMAX [Suspect]
     Active Substance: TAFAMIDIS
     Indication: PRODUCT USED FOR UNKNOWN INDICATION
     Route: 048
     Dates: start: 20201103

REACTIONS (2)
  - Fall [None]
  - Hip fracture [None]
